FAERS Safety Report 16695005 (Version 21)
Quarter: 2021Q3

REPORT INFORMATION
  Report Type: Spontaneous
  Country: CA (occurrence: CA)
  Receive Date: 20190812
  Receipt Date: 20210806
  Transmission Date: 20211014
  Serious: Yes (Other)
  Sender: FDA-Public Use
  Company Number: CA-CELLTRION INC.-2017CA007426

PATIENT

DRUGS (56)
  1. INFLECTRA [Suspect]
     Active Substance: INFLIXIMAB-DYYB
     Dosage: 320 MG, EVERY 6 WEEKS
     Route: 042
     Dates: start: 20180320, end: 20191210
  2. INFLECTRA [Suspect]
     Active Substance: INFLIXIMAB-DYYB
     Dosage: 320 MG, EVERY 6 WEEKS
     Route: 042
     Dates: start: 20180518
  3. INFLECTRA [Suspect]
     Active Substance: INFLIXIMAB-DYYB
     Dosage: 320 MG, EVERY 6 WEEKS
     Route: 042
     Dates: start: 20210422
  4. HYDROCORTISONE. [Concomitant]
     Active Substance: HYDROCORTISONE
     Indication: PREMEDICATION
     Dosage: 100 MG, UNK
     Route: 042
     Dates: start: 20190121, end: 20190121
  5. TYLENOL ARTHRITIS PAIN [Concomitant]
     Active Substance: ACETAMINOPHEN
     Indication: PREMEDICATION
     Dosage: 650 MG, 2 TABLETS
     Dates: start: 20200713
  6. INFLECTRA [Suspect]
     Active Substance: INFLIXIMAB-DYYB
     Dosage: 400 MG, EVERY 6 WEEKS
     Route: 042
     Dates: start: 20171211, end: 20171211
  7. ACETAMINOPHEN. [Concomitant]
     Active Substance: ACETAMINOPHEN
     Indication: PREMEDICATION
     Dosage: 650 MG, UNK
     Route: 048
     Dates: start: 20190121, end: 20190121
  8. DILAUDID [Concomitant]
     Active Substance: HYDROMORPHONE HYDROCHLORIDE
     Dosage: UNK
     Route: 065
  9. DIPHENHYDRAMINE. [Concomitant]
     Active Substance: DIPHENHYDRAMINE
     Indication: PREMEDICATION
     Dosage: 50 MG, UNK
     Route: 048
     Dates: start: 20190121, end: 20190121
  10. DIPHENHYDRAMINE. [Concomitant]
     Active Substance: DIPHENHYDRAMINE
     Dosage: 25 MG
     Dates: start: 20200824, end: 20200824
  11. INFLECTRA [Suspect]
     Active Substance: INFLIXIMAB-DYYB
     Dosage: 320 MG, EVERY 6 WEEKS
     Route: 042
     Dates: start: 20190305
  12. INFLECTRA [Suspect]
     Active Substance: INFLIXIMAB-DYYB
     Dosage: 320 MG, EVERY 6 WEEKS
     Route: 042
     Dates: start: 20190730, end: 20190730
  13. INFLECTRA [Suspect]
     Active Substance: INFLIXIMAB-DYYB
     Dosage: 320 MG, EVERY 6 WEEKS
     Route: 042
     Dates: start: 20191210, end: 20191210
  14. INFLECTRA [Suspect]
     Active Substance: INFLIXIMAB-DYYB
     Dosage: 271 MG (3MG/KG) EVERY 6 WEEKS
     Route: 042
     Dates: start: 20200124, end: 20200124
  15. ACETAMINOPHEN. [Concomitant]
     Active Substance: ACETAMINOPHEN
     Dosage: 650 MG
     Dates: start: 20200824, end: 20200824
  16. LEUCOVORIN CALCIUM. [Concomitant]
     Active Substance: LEUCOVORIN CALCIUM
     Dosage: 4 TAB THE DAY AFTER MTX
  17. TYLENOL [Concomitant]
     Active Substance: ACETAMINOPHEN
     Indication: PREMEDICATION
     Dosage: 650 MG, UNK
     Route: 048
     Dates: start: 20190613, end: 20190613
  18. INFLECTRA [Suspect]
     Active Substance: INFLIXIMAB-DYYB
     Dosage: 320 MG, EVERY 6 WEEKS
     Route: 042
     Dates: start: 20180822
  19. INFLECTRA [Suspect]
     Active Substance: INFLIXIMAB-DYYB
     Dosage: 320 MG, EVERY 6 WEEKS
     Route: 042
     Dates: start: 20190423
  20. INFLECTRA [Suspect]
     Active Substance: INFLIXIMAB-DYYB
     Dosage: 3MG/KG EVERY 6 WEEKS  (320 MG)
     Route: 042
     Dates: start: 20200526
  21. ARTHROTEC [Concomitant]
     Active Substance: DICLOFENAC SODIUM\MISOPROSTOL
     Dosage: 1 DF
     Route: 065
  22. CORTISONE [Concomitant]
     Active Substance: CORTISONE
     Dosage: UNK
     Dates: start: 20200121
  23. MOTILIUM [Concomitant]
     Active Substance: DOMPERIDONE
     Dosage: UNK
     Route: 065
  24. TYLENOL ARTHRITIS PAIN [Concomitant]
     Active Substance: ACETAMINOPHEN
     Dosage: 650 MG, 2 TABLETS (1300 MG)
     Dates: start: 20201001, end: 20201001
  25. INFLECTRA [Suspect]
     Active Substance: INFLIXIMAB-DYYB
     Dosage: 400 MG, EVERY 6 WEEKS
     Route: 042
     Dates: start: 20180130, end: 20180130
  26. INFLECTRA [Suspect]
     Active Substance: INFLIXIMAB-DYYB
     Dosage: 320 MG, EVERY 6 WEEKS
     Route: 042
     Dates: start: 20190121, end: 20190121
  27. INFLECTRA [Suspect]
     Active Substance: INFLIXIMAB-DYYB
     Dosage: 3MG/KG EVERY 6 WEEKS (320 MG)
     Route: 042
     Dates: start: 20200312
  28. BENADRYL [Concomitant]
     Active Substance: DIPHENHYDRAMINE HYDROCHLORIDE
     Indication: PREMEDICATION
     Dosage: 50 MG, UNK
     Route: 048
     Dates: start: 20190613
  29. COLACE [Concomitant]
     Active Substance: DOCUSATE SODIUM
     Dosage: UNK
     Route: 065
  30. FOLIC ACID. [Concomitant]
     Active Substance: FOLIC ACID
     Dosage: UNK
     Route: 065
  31. HYDROMORPH CONTIN [Concomitant]
     Active Substance: HYDROMORPHONE
     Dosage: UNK
     Route: 065
  32. METHOTREXATE. [Concomitant]
     Active Substance: METHOTREXATE
     Dosage: UNK
     Route: 065
  33. SOLU?CORTEF [Concomitant]
     Active Substance: HYDROCORTISONE SODIUM SUCCINATE
     Indication: PREMEDICATION
     Dosage: 100 MG, UNK
     Route: 042
     Dates: start: 20190613, end: 20190613
  34. INFLECTRA [Suspect]
     Active Substance: INFLIXIMAB-DYYB
     Dosage: 250 MG, EVERY 6 WEEKS
     Route: 042
     Dates: start: 20160617, end: 20170503
  35. INFLECTRA [Suspect]
     Active Substance: INFLIXIMAB-DYYB
     Dosage: 320 MG, EVERY 6 WEEKS
     Route: 042
     Dates: start: 20181204
  36. INFLECTRA [Suspect]
     Active Substance: INFLIXIMAB-DYYB
     Dosage: 320 MG, EVERY 6 WEEKS
     Route: 042
     Dates: start: 20190907
  37. INFLECTRA [Suspect]
     Active Substance: INFLIXIMAB-DYYB
     Dosage: 3 MG/KG EVERY 6 WEEKS (320 MG)
     Route: 042
     Dates: start: 20200824
  38. INFLECTRA [Suspect]
     Active Substance: INFLIXIMAB-DYYB
     Dosage: 320 MG EVERY 6 WEEKS
     Route: 042
     Dates: start: 20201123
  39. METHOTREXATE. [Concomitant]
     Active Substance: METHOTREXATE
     Dosage: 20 MG, WEEKLY
     Route: 048
     Dates: start: 202001
  40. VITAMIN D3 [Concomitant]
     Active Substance: CHOLECALCIFEROL
     Dosage: 1 TAB (1000 IU) DIE
  41. INFLECTRA [Suspect]
     Active Substance: INFLIXIMAB-DYYB
     Dosage: 400 MG, EVERY 6 WEEKS
     Route: 042
     Dates: start: 20170613, end: 20180130
  42. INFLECTRA [Suspect]
     Active Substance: INFLIXIMAB-DYYB
     Dosage: 320 MG, EVERY 6 WEEKS
     Route: 042
     Dates: start: 20190613, end: 20190613
  43. INFLECTRA [Suspect]
     Active Substance: INFLIXIMAB-DYYB
     Dosage: 320 MG, EVERY 6 WEEKS
     Route: 042
     Dates: start: 20191017
  44. INFLECTRA [Suspect]
     Active Substance: INFLIXIMAB-DYYB
     Dosage: 3MG/KG EVERY 6 WEEKS  (320 MG)
     Route: 042
     Dates: start: 20200713
  45. INFLECTRA [Suspect]
     Active Substance: INFLIXIMAB-DYYB
     Dosage: 3 MG/KG EVERY 6 WEEKS (320 MG)
     Route: 042
     Dates: start: 20200824
  46. INFLECTRA [Suspect]
     Active Substance: INFLIXIMAB-DYYB
     Dosage: 320 MG, EVERY 6 WEEKS
     Dates: start: 20210618
  47. BENADRYL [Concomitant]
     Active Substance: DIPHENHYDRAMINE HYDROCHLORIDE
     Dosage: 50 MG, UNK
     Dates: start: 20200713, end: 20200713
  48. DEXILANT [Concomitant]
     Active Substance: DEXLANSOPRAZOLE
     Dosage: UNK
     Route: 065
  49. METHOTREXATE. [Concomitant]
     Active Substance: METHOTREXATE
     Dosage: UNK
     Route: 065
  50. INFLECTRA [Suspect]
     Active Substance: INFLIXIMAB-DYYB
     Indication: PSORIASIS
     Dosage: 250 MG, EVERY 0,2,6 THEN EVERY 8 WEEKS
     Route: 042
     Dates: start: 20151117, end: 20160506
  51. INFLECTRA [Suspect]
     Active Substance: INFLIXIMAB-DYYB
     Dosage: 320 MG, EVERY 6 WEEKS
     Route: 042
     Dates: start: 20181016
  52. INFLECTRA [Suspect]
     Active Substance: INFLIXIMAB-DYYB
     Dosage: 3MG/KG EVERY 6 WEEKS  (320 MG)
     Route: 042
     Dates: start: 20200713
  53. INFLECTRA [Suspect]
     Active Substance: INFLIXIMAB-DYYB
     Dosage: 320 MG EVERY 6 WEEKS
     Route: 042
     Dates: start: 20201001
  54. INFLECTRA [Suspect]
     Active Substance: INFLIXIMAB-DYYB
     Dosage: 320 MG EVERY 6 WEEKS
     Route: 042
     Dates: start: 20210128
  55. INFLECTRA [Suspect]
     Active Substance: INFLIXIMAB-DYYB
     Dosage: 320 MG EVERY 6 WEEKS
     Route: 042
     Dates: start: 20210310
  56. SENOKOT [Concomitant]
     Active Substance: SENNOSIDES
     Dosage: UNK
     Route: 065

REACTIONS (47)
  - Mouth ulceration [Unknown]
  - Injection site bruising [Recovered/Resolved]
  - Aphthous ulcer [Not Recovered/Not Resolved]
  - Cough [Unknown]
  - Condition aggravated [Unknown]
  - Seasonal allergy [Unknown]
  - Tongue pruritus [Unknown]
  - Weight decreased [Not Recovered/Not Resolved]
  - Foot fracture [Not Recovered/Not Resolved]
  - Pain [Recovering/Resolving]
  - Nasopharyngitis [Not Recovered/Not Resolved]
  - Vaginal infection [Recovered/Resolved]
  - Laryngitis [Not Recovered/Not Resolved]
  - Oropharyngeal pain [Not Recovered/Not Resolved]
  - Laryngopharyngitis [Recovered/Resolved]
  - Hypokinesia [Unknown]
  - Arthralgia [Not Recovered/Not Resolved]
  - Heavy menstrual bleeding [Unknown]
  - Chills [Unknown]
  - Productive cough [Unknown]
  - Gingival erythema [Unknown]
  - Oral herpes [Unknown]
  - Cyanosis [Unknown]
  - Off label use [Unknown]
  - Flatulence [Recovering/Resolving]
  - Blood pressure fluctuation [Unknown]
  - Malaise [Unknown]
  - Impaired healing [Unknown]
  - Gingival pain [Unknown]
  - Inappropriate schedule of product administration [Unknown]
  - Dizziness [Not Recovered/Not Resolved]
  - Rhinorrhoea [Not Recovered/Not Resolved]
  - Infusion site erythema [Not Recovered/Not Resolved]
  - Gastric disorder [Unknown]
  - Bursitis [Unknown]
  - Gingival disorder [Recovering/Resolving]
  - Limb injury [Unknown]
  - Drug ineffective [Unknown]
  - Nausea [Not Recovered/Not Resolved]
  - Skin lesion [Unknown]
  - Intentional product use issue [Unknown]
  - Abdominal distension [Recovering/Resolving]
  - Fatigue [Recovering/Resolving]
  - Bronchitis [Not Recovered/Not Resolved]
  - Ingrowing nail [Unknown]
  - Paraesthesia oral [Unknown]
  - Off label use [Unknown]

NARRATIVE: CASE EVENT DATE: 20160617
